FAERS Safety Report 9584665 (Version 1)
Quarter: 2013Q4

REPORT INFORMATION
  Report Type: Spontaneous
  Country: US (occurrence: US)
  Receive Date: 20131002
  Receipt Date: 20131002
  Transmission Date: 20140711
  Serious: No
  Sender: FDA-Public Use
  Company Number: US-AMGEN-USASP2013054817

PATIENT
  Age: 58 Year
  Sex: Male

DRUGS (3)
  1. ENBREL [Suspect]
     Indication: RHEUMATOID ARTHRITIS
     Dosage: 50 MG, QWK
     Route: 065
     Dates: start: 20130520
  2. METHOTREXATE [Concomitant]
     Dosage: 40 MG, QWK
     Route: 065
  3. SULFASALAZINE [Concomitant]
     Dosage: 5000 MG, QWK
     Route: 065
     Dates: start: 2013

REACTIONS (5)
  - Pain in extremity [Not Recovered/Not Resolved]
  - Local swelling [Not Recovered/Not Resolved]
  - Condition aggravated [Recovered/Resolved]
  - Mobility decreased [Recovered/Resolved]
  - Arthralgia [Not Recovered/Not Resolved]
